FAERS Safety Report 15155532 (Version 1)
Quarter: 2018Q3

REPORT INFORMATION
  Report Type: Spontaneous
  Country: US (occurrence: US)
  Receive Date: 20180620
  Receipt Date: 20180620
  Transmission Date: 20181010
  Serious: Yes (Disabling)
  Sender: FDA-Public Use
  Company Number: None

PATIENT
  Age: 60 Year
  Sex: Male
  Weight: 140.61 kg

DRUGS (13)
  1. LANCETS (ACCU?CHEK FASTCLIX LANCETS) [Concomitant]
  2. BYDUREON [Suspect]
     Active Substance: EXENATIDE
     Indication: GLYCOSYLATED HAEMOGLOBIN INCREASED
     Dates: start: 20180313
  3. ATENOLOL. [Concomitant]
     Active Substance: ATENOLOL
  4. ALBUTEROL. [Concomitant]
     Active Substance: ALBUTEROL
  5. GLIMEPIRIDE. [Concomitant]
     Active Substance: GLIMEPIRIDE
  6. METFORMIN [Concomitant]
     Active Substance: METFORMIN HYDROCHLORIDE
  7. PRAVASTATIN. [Concomitant]
     Active Substance: PRAVASTATIN
  8. HUMIRA [Concomitant]
     Active Substance: ADALIMUMAB
  9. ASPIRIN 81 MG [Concomitant]
     Active Substance: ASPIRIN
  10. GLUCOSE TEST STRIP (ACCU?CHEK AVIVA) [Concomitant]
  11. ISOPROPYL ALCOHOL TOPICAL (BD SINGLE USE SWAB TOPICAL PAD) [Concomitant]
  12. PERCOCET [Concomitant]
     Active Substance: ACETAMINOPHEN\OXYCODONE HYDROCHLORIDE
  13. FUROSEMIDE. [Concomitant]
     Active Substance: FUROSEMIDE

REACTIONS (1)
  - Injection site swelling [None]

NARRATIVE: CASE EVENT DATE: 20180501
